FAERS Safety Report 23668804 (Version 1)
Quarter: 2024Q1

REPORT INFORMATION
  Report Type: Spontaneous
  Country: US (occurrence: US)
  Receive Date: 20240325
  Receipt Date: 20240325
  Transmission Date: 20240410
  Serious: No
  Sender: FDA-Public Use
  Company Number: US-002147023-NVSC2024US063067

PATIENT
  Sex: Female

DRUGS (2)
  1. TYKERB [Suspect]
     Active Substance: LAPATINIB DITOSYLATE
     Indication: Product used for unknown indication
     Dosage: UNK
     Route: 065
     Dates: start: 201509
  2. HERCEPTIN [Concomitant]
     Active Substance: TRASTUZUMAB
     Indication: Product used for unknown indication
     Route: 065

REACTIONS (2)
  - Palmar-plantar erythrodysaesthesia syndrome [Unknown]
  - Drug intolerance [Unknown]
